FAERS Safety Report 20660546 (Version 2)
Quarter: 2022Q3

REPORT INFORMATION
  Report Type: Spontaneous
  Country: US (occurrence: US)
  Receive Date: 20220331
  Receipt Date: 20220708
  Transmission Date: 20221026
  Serious: Yes (Other)
  Sender: FDA-Public Use
  Company Number: US-PFIZER INC-202101057361

PATIENT
  Age: 46 Year
  Sex: Female

DRUGS (1)
  1. XELJANZ [Suspect]
     Active Substance: TOFACITINIB CITRATE
     Dosage: 5 MG
     Dates: start: 20170101

REACTIONS (5)
  - Intervertebral disc operation [Unknown]
  - Contusion [Unknown]
  - Product dose omission issue [Unknown]
  - Off label use [Unknown]
  - Back pain [Not Recovered/Not Resolved]
